FAERS Safety Report 15704627 (Version 4)
Quarter: 2019Q1

REPORT INFORMATION
  Report Type: Report from Study
  Country: CO (occurrence: CO)
  Receive Date: 20181210
  Receipt Date: 20190301
  Transmission Date: 20190417
  Serious: Yes (Hospitalization)
  Sender: FDA-Public Use
  Company Number: CO-ASTELLAS-2018US052341

PATIENT
  Age: 16 Year
  Sex: Male
  Weight: 50 kg

DRUGS (4)
  1. TRIMETHOPRIM. [Concomitant]
     Active Substance: TRIMETHOPRIM
     Indication: PRODUCT USED FOR UNKNOWN INDICATION
     Dosage: UNK UNK, UNKNOWN FREQ.
     Route: 065
  2. TACROLIMUS. [Suspect]
     Active Substance: TACROLIMUS
     Indication: PHARYNGITIS
  3. OMEPRAZOLE. [Concomitant]
     Active Substance: OMEPRAZOLE
     Indication: GASTRITIS
     Dosage: 1 DF, IN FASTING
     Route: 048
     Dates: start: 2017
  4. TACROLIMUS. [Suspect]
     Active Substance: TACROLIMUS
     Indication: IMMUNOSUPPRESSION
     Dosage: 1 MG, ONCE DAILY EVERY 24 HOURS
     Route: 048
     Dates: start: 20170612

REACTIONS (9)
  - Oropharyngeal plaque [Not Recovered/Not Resolved]
  - Influenza [Not Recovered/Not Resolved]
  - Yellow skin [Unknown]
  - Stomatitis [Recovered/Resolved]
  - Urine analysis abnormal [Unknown]
  - Mouth injury [Recovered/Resolved]
  - Hypersensitivity [Unknown]
  - Ocular icterus [Unknown]
  - Liver transplant rejection [Not Recovered/Not Resolved]

NARRATIVE: CASE EVENT DATE: 20181010
